FAERS Safety Report 10984699 (Version 4)
Quarter: 2015Q2

REPORT INFORMATION
  Report Type: Spontaneous
  Country: JP (occurrence: JP)
  Receive Date: 20150403
  Receipt Date: 20150423
  Transmission Date: 20150821
  Serious: Yes (Other)
  Sender: FDA-Public Use
  Company Number: JP-PFIZER INC-2015115598

PATIENT
  Age: 70 Year
  Sex: Female

DRUGS (5)
  1. CELECOX [Suspect]
     Active Substance: CELECOXIB
     Indication: BACK PAIN
  2. ZOLINZA [Suspect]
     Active Substance: VORINOSTAT
     Dosage: 300 MG, 1X/DAY
     Route: 048
     Dates: start: 20150218, end: 20150304
  3. CELECOX [Suspect]
     Active Substance: CELECOXIB
     Indication: ARTHRALGIA
     Dosage: 200 MG, 1X/DAY
     Route: 048
     Dates: start: 20150206, end: 20150224
  4. CALONAL [Concomitant]
     Active Substance: ACETAMINOPHEN
     Dosage: UNK
     Dates: start: 20150225
  5. ZOLINZA [Suspect]
     Active Substance: VORINOSTAT
     Dosage: 400 MG, 1X/DAY
     Route: 048
     Dates: start: 20150202, end: 20150217

REACTIONS (4)
  - Cell marker increased [Recovering/Resolving]
  - Drug eruption [Recovering/Resolving]
  - Eosinophil count increased [Recovering/Resolving]
  - Interstitial lung disease [Recovering/Resolving]

NARRATIVE: CASE EVENT DATE: 201502
